FAERS Safety Report 5928501-5 (Version None)
Quarter: 2008Q4

REPORT INFORMATION
  Report Type: 
  Country: None (occurrence: None)
  Receive Date: 20081023
  Receipt Date: 20081017
  Transmission Date: 20090506
  Serious: Yes (Hospitalization)
  Sender: FDA-Public Use
  Company Number: US-ELI_LILLY_AND_COMPANY-US200810004284

PATIENT
  Sex: Female

DRUGS (6)
  1. BYETTA [Suspect]
     Indication: TYPE 2 DIABETES MELLITUS
     Dosage: 5 UG, UNKNOWN
     Route: 058
     Dates: start: 20061201
  2. GLUCOPHAGE [Concomitant]
     Dosage: UNK, UNKNOWN
  3. LANTUS [Concomitant]
     Dosage: UNK, UNKNOWN
  4. VASOTEC [Concomitant]
     Dosage: UNK, UNKNOWN
  5. MOTRIN [Concomitant]
     Dosage: UNK, UNKNOWN
  6. AMARYL [Concomitant]
     Dosage: UNK, UNKNOWN

REACTIONS (3)
  - CEREBROVASCULAR ACCIDENT [None]
  - LIMB INJURY [None]
  - ROAD TRAFFIC ACCIDENT [None]
